FAERS Safety Report 6962937-9 (Version None)
Quarter: 2010Q3

REPORT INFORMATION
  Report Type: 
  Country: None (occurrence: None)
  Receive Date: 20100831
  Receipt Date: 20100823
  Transmission Date: 20110219
  Serious: Yes (Death, Hospitalization)
  Sender: FDA-Public Use
  Company Number: 011490

PATIENT
  Age: 52 Year
  Sex: Male
  Weight: 73 kg

DRUGS (3)
  1. KEPPRA [Suspect]
     Dosage: SEE IMAGE
     Route: 048
     Dates: start: 20100505, end: 20100505
  2. KEPPRA [Suspect]
     Dosage: SEE IMAGE
     Route: 048
     Dates: start: 20040501
  3. LAMICTAL [Concomitant]

REACTIONS (7)
  - ACCIDENTAL OVERDOSE [None]
  - AORTIC VALVE SCLEROSIS [None]
  - ARRHYTHMIA [None]
  - CONFUSIONAL STATE [None]
  - DELUSION [None]
  - DRUG DISPENSING ERROR [None]
  - MYOCARDIAL INFARCTION [None]
